FAERS Safety Report 21846114 (Version 9)
Quarter: 2024Q3

REPORT INFORMATION
  Report Type: Report from Study
  Country: US (occurrence: US)
  Receive Date: 20230111
  Receipt Date: 20240701
  Transmission Date: 20241016
  Serious: Yes (Hospitalization)
  Sender: NOVARTIS
  Company Number: US-002147023-NVSC2023US005514

PATIENT
  Sex: Female

DRUGS (2)
  1. KESIMPTA [Suspect]
     Active Substance: OFATUMUMAB
     Indication: Relapsing multiple sclerosis
     Dosage: 20 MG, QMO
     Route: 058
     Dates: start: 20221011
  2. KESIMPTA [Suspect]
     Active Substance: OFATUMUMAB
     Indication: Rhabdomyosarcoma

REACTIONS (8)
  - Dysuria [Unknown]
  - COVID-19 [Unknown]
  - Fatigue [Unknown]
  - Mobility decreased [Unknown]
  - Gait disturbance [Unknown]
  - Injection site haemorrhage [Recovered/Resolved]
  - Device malfunction [Unknown]
  - Therapeutic response unexpected [Unknown]
